FAERS Safety Report 17581812 (Version 1)
Quarter: 2020Q1

REPORT INFORMATION
  Report Type: Spontaneous
  Country: US (occurrence: US)
  Receive Date: 20200323
  Receipt Date: 20200323
  Transmission Date: 20200409
  Serious: Yes (Death)
  Sender: FDA-Public Use
  Company Number: None

PATIENT
  Age: 69 Year
  Sex: Female

DRUGS (18)
  1. BREO ELLIPTA INH [Concomitant]
  2. CLARITIN [Concomitant]
     Active Substance: LORATADINE
  3. LATANOPROST SOL [Concomitant]
  4. TEMAZEPAM. [Concomitant]
     Active Substance: TEMAZEPAM
  5. ESBRIET [Suspect]
     Active Substance: PIRFENIDONE
     Indication: IDIOPATHIC PULMONARY FIBROSIS
     Route: 048
     Dates: start: 20190307
  6. LEVOTHYROXIN [Concomitant]
     Active Substance: LEVOTHYROXINE
  7. RANITIDINE. [Concomitant]
     Active Substance: RANITIDINE
  8. ROSUVASTATIN. [Concomitant]
     Active Substance: ROSUVASTATIN
  9. ASPIRIN. [Concomitant]
     Active Substance: ASPIRIN
  10. MEMANTINE. [Concomitant]
     Active Substance: MEMANTINE
  11. ROPINIROLE. [Concomitant]
     Active Substance: ROPINIROLE
  12. ALBUTEROL. [Concomitant]
     Active Substance: ALBUTEROL
  13. LORATADINE. [Concomitant]
     Active Substance: LORATADINE
  14. SODIUM BICAR [Concomitant]
  15. SPIRIVA [Concomitant]
     Active Substance: TIOTROPIUM BROMIDE MONOHYDRATE
  16. DONEPEZIL. [Concomitant]
     Active Substance: DONEPEZIL
  17. LISINOPRIL. [Concomitant]
     Active Substance: LISINOPRIL
  18. VENTOLIN HFA [Concomitant]
     Active Substance: ALBUTEROL SULFATE

REACTIONS (1)
  - Death [None]
